FAERS Safety Report 7739690-4 (Version None)
Quarter: 2011Q3

REPORT INFORMATION
  Report Type: 
  Country: None (occurrence: None)
  Receive Date: 20110909
  Receipt Date: 20110901
  Transmission Date: 20111222
  Serious: Yes (Other)
  Sender: FDA-Public Use
  Company Number: US-JNJFOC-20110901334

PATIENT
  Age: 30 Year
  Sex: Female
  Weight: 54.43 kg

DRUGS (2)
  1. ORTHO-NOVUM 1/35 [Suspect]
     Indication: OVARIAN CYST
     Route: 048
     Dates: start: 20060101
  2. ORTHO-NOVUM 1/35 [Suspect]
     Indication: HAEMORRHAGE
     Route: 048
     Dates: start: 20060101

REACTIONS (3)
  - PITUITARY TUMOUR [None]
  - DRUG PRESCRIBING ERROR [None]
  - OFF LABEL USE [None]
